FAERS Safety Report 23684530 (Version 1)
Quarter: 2024Q1

REPORT INFORMATION
  Report Type: Report from Study
  Country: US (occurrence: US)
  Receive Date: 20240328
  Receipt Date: 20240328
  Transmission Date: 20240410
  Serious: Yes (Hospitalization)
  Sender: FDA-Public Use
  Company Number: US-ABBVIE-5692176

PATIENT
  Sex: Female

DRUGS (1)
  1. HUMIRA [Suspect]
     Active Substance: ADALIMUMAB
     Indication: Crohn^s disease
     Dosage: FORM STRENGTH: 40 MG
     Route: 058
     Dates: start: 20230707

REACTIONS (5)
  - Haemoglobin decreased [Unknown]
  - Muscle spasms [Unknown]
  - Thinking abnormal [Unknown]
  - Unevaluable event [Unknown]
  - Blood iron decreased [Unknown]
